FAERS Safety Report 9236554 (Version 2)
Quarter: 2013Q2

REPORT INFORMATION
  Report Type: Spontaneous
  Country: DE (occurrence: DE)
  Receive Date: 20130417
  Receipt Date: 20130515
  Transmission Date: 20140414
  Serious: Yes (Death, Other)
  Sender: FDA-Public Use
  Company Number: DE-ROCHE-1210837

PATIENT
  Age: 39 Year
  Sex: Male

DRUGS (20)
  1. REVLIMID [Suspect]
     Indication: THYMOMA
     Route: 065
     Dates: start: 200905, end: 200909
  2. DEXAMETHASONE [Suspect]
     Indication: THYMOMA
     Dosage: ON DAY 1-4 AND DAYS 17-20 OF THE CYCLE
     Route: 065
     Dates: start: 200905, end: 200909
  3. SUNITINIB [Suspect]
     Indication: THYMOMA
     Dosage: ON DAY 1 TILL 28 PAUSE ON DAY 29 TILL 42 OF THE CYCLE
     Route: 065
     Dates: start: 200910, end: 201001
  4. CAPECITABINE [Suspect]
     Indication: THYMOMA
     Dosage: SIX CYCLES
     Route: 065
     Dates: start: 201004, end: 201008
  5. CAPECITABINE [Suspect]
     Dosage: SEVENTH CYCLE OF CAPECITABINE
     Route: 065
     Dates: start: 201011
  6. OXALIPLATIN [Suspect]
     Indication: THYMOMA
     Route: 065
     Dates: start: 201004, end: 201008
  7. OXALIPLATIN [Suspect]
     Route: 065
     Dates: start: 201011
  8. DOXORUBICIN [Suspect]
     Indication: THYMOMA
     Dosage: FOUR CYCLES
     Route: 065
     Dates: start: 200104, end: 200108
  9. CISPLATIN [Suspect]
     Indication: THYMOMA
     Dosage: FOUR CYCLES
     Route: 065
     Dates: start: 200104, end: 200108
  10. CYCLOPHOSPHAMIDE [Suspect]
     Indication: THYMOMA
     Dosage: 4 CYCLES
     Route: 065
     Dates: start: 200104, end: 200108
  11. PACLITAXEL [Suspect]
     Indication: THYMOMA
     Dosage: 1 CYCLE
     Route: 065
     Dates: start: 200202
  12. IFOSFAMIDE [Suspect]
     Indication: THYMOMA
     Route: 065
     Dates: start: 200202
  13. IFOSFAMIDE [Suspect]
     Dosage: 3 CYCLES
     Route: 065
     Dates: start: 200203, end: 200205
  14. GEMCITABINE [Suspect]
     Indication: THYMOMA
     Route: 065
     Dates: start: 200402, end: 200505
  15. GEMCITABINE [Suspect]
     Route: 065
     Dates: start: 201102
  16. GEMCITABINE [Suspect]
     Route: 065
     Dates: start: 200602, end: 200704
  17. THALIDOMIDE [Suspect]
     Indication: THYMOMA
     Route: 065
     Dates: start: 200402, end: 200505
  18. THALIDOMIDE [Suspect]
     Route: 065
     Dates: start: 200511, end: 200512
  19. PREDNISOLONE [Suspect]
     Indication: THYMOMA
     Dosage: ONCE PER DAY
     Route: 065
     Dates: start: 200511, end: 200512
  20. SORAFENIB [Suspect]
     Indication: THYMOMA
     Route: 065
     Dates: start: 200705, end: 200905

REACTIONS (2)
  - Progressive multifocal leukoencephalopathy [Fatal]
  - Palmar-plantar erythrodysaesthesia syndrome [Unknown]
